FAERS Safety Report 11286490 (Version 1)
Quarter: 2015Q3

REPORT INFORMATION
  Report Type: Spontaneous
  Country: US (occurrence: None)
  Receive Date: 20150720
  Receipt Date: 20150720
  Transmission Date: 20151125
  Serious: Yes (Other)
  Sender: FDA-Public Use
  Company Number: None

PATIENT
  Age: 14 Year
  Sex: Female
  Weight: 154 kg

DRUGS (7)
  1. ABILIFY [Concomitant]
     Active Substance: ARIPIPRAZOLE
  2. MIRALAX [Concomitant]
     Active Substance: POLYETHYLENE GLYCOL 3350
  3. INTUNIV [Concomitant]
     Active Substance: GUANFACINE HYDROCHLORIDE
  4. CITALOPRAM [Concomitant]
     Active Substance: CITALOPRAM HYDROBROMIDE
  5. HYDROXYZINE [Concomitant]
     Active Substance: HYDROXYZINE\HYDROXYZINE HYDROCHLORIDE
  6. CLARITIN [Concomitant]
     Active Substance: LORATADINE
  7. ARIPIPRAZOLE CAMBER [Suspect]
     Active Substance: ARIPIPRAZOLE
     Indication: PSYCHOTIC DISORDER
     Dosage: TAKE ONE HALF TAB EVERY AM AND TAKE ONE HALF TAB. EVERY PM
     Dates: start: 20150624, end: 20150630

REACTIONS (6)
  - Condition aggravated [None]
  - Mental disorder [None]
  - Disorientation [None]
  - Social avoidant behaviour [None]
  - Autism [None]
  - Panic attack [None]

NARRATIVE: CASE EVENT DATE: 20150624
